FAERS Safety Report 22600496 (Version 1)
Quarter: 2023Q2

REPORT INFORMATION
  Report Type: Report from Study
  Country: RU (occurrence: None)
  Receive Date: 20230614
  Receipt Date: 20230614
  Transmission Date: 20230721
  Serious: Yes (Hospitalization)
  Sender: FDA-Public Use
  Company Number: RU-ROCHE-3345608

PATIENT
  Age: 66 Year
  Sex: Female
  Weight: 74 kg

DRUGS (5)
  1. ATEZOLIZUMAB [Suspect]
     Active Substance: ATEZOLIZUMAB
     Indication: Ovarian epithelial cancer
     Dosage: DOSE LAST STUDY DRUG ADMIN PRIOR AE AND SAE IS 1200 MG, START DATE OF MOST RECENT DOSE OF STUDY DRUG
     Route: 041
     Dates: start: 20220204
  2. BEVACIZUMAB [Suspect]
     Active Substance: BEVACIZUMAB
     Indication: Ovarian epithelial cancer
     Dosage: DOSE LAST STUDY DRUG ADMIN PRIOR AE AND SAE IS 1110 MG, START DATE AND END DATE OF MOST RECENT DOSE
     Route: 042
     Dates: start: 20220204
  3. LEVOTHYROXINE [Concomitant]
     Active Substance: LEVOTHYROXINE
     Indication: Hypothyroidism
     Route: 048
  4. AMLODIPINE [Concomitant]
     Active Substance: AMLODIPINE BESYLATE
     Indication: Hypertension
     Route: 048
  5. PREDNISONE [Concomitant]
     Active Substance: PREDNISONE

REACTIONS (1)
  - Haemolytic anaemia [Not Recovered/Not Resolved]

NARRATIVE: CASE EVENT DATE: 20230430
